FAERS Safety Report 5321947-8 (Version None)
Quarter: 2007Q2

REPORT INFORMATION
  Report Type: 
  Country: None (occurrence: None)
  Receive Date: 20070511
  Receipt Date: 20070502
  Transmission Date: 20071010
  Serious: Yes (Hospitalization)
  Sender: FDA-Public Use
  Company Number: PHEH2007US05131

PATIENT
  Age: 51 Year
  Sex: Female

DRUGS (14)
  1. ZELNORM [Suspect]
     Indication: CONSTIPATION
     Dosage: 6 MG, BID
     Route: 048
     Dates: start: 20060601, end: 20070413
  2. NEXIUM [Concomitant]
  3. DUCOLAX [Concomitant]
  4. AMITIZA [Suspect]
  5. CYMBALTA [Concomitant]
  6. RITALIN [Concomitant]
  7. VALTREX [Concomitant]
  8. MOBIC [Concomitant]
  9. ZOFRAN [Concomitant]
  10. WELLBUTRIN [Concomitant]
  11. PLAQUENIL [Concomitant]
  12. PROVIGIL [Concomitant]
  13. KLONOPIN [Concomitant]
  14. TRAMADOL HCL [Concomitant]

REACTIONS (4)
  - ANAEMIA [None]
  - DIARRHOEA [None]
  - PYREXIA [None]
  - VOMITING [None]
